FAERS Safety Report 7738556-3 (Version None)
Quarter: 2011Q3

REPORT INFORMATION
  Report Type: 
  Country: None (occurrence: None)
  Receive Date: 20110908
  Receipt Date: 20110829
  Transmission Date: 20111222
  Serious: Yes (Hospitalization)
  Sender: FDA-Public Use
  Company Number: US-BAXTER-2011BH026789

PATIENT
  Age: 60 Year
  Sex: Male
  Weight: 131 kg

DRUGS (8)
  1. SEVELAMER [Concomitant]
     Indication: HYPERPHOSPHATAEMIA
     Route: 048
  2. DIANEAL [Suspect]
     Indication: PERITONEAL DIALYSIS
     Route: 033
     Dates: start: 20101001, end: 20110815
  3. ACETYLSALICYLIC ACID SRT [Concomitant]
     Indication: CORONARY ARTERY DISEASE
     Route: 048
  4. SENSIPAR [Concomitant]
     Indication: HYPERPARATHYROIDISM
     Route: 048
  5. RENA-VITE [Concomitant]
     Indication: VITAMIN SUPPLEMENTATION
     Route: 048
  6. COREG [Concomitant]
     Indication: CORONARY ARTERY DISEASE
     Route: 048
  7. AMLODIPINE [Concomitant]
     Indication: HYPERTENSION
     Route: 048
  8. DIOVAN [Concomitant]
     Indication: CORONARY ARTERY DISEASE
     Route: 048

REACTIONS (3)
  - BLOODY PERITONEAL EFFLUENT [None]
  - CONSTIPATION [None]
  - ABDOMINAL ABSCESS [None]
